FAERS Safety Report 13705097 (Version 1)
Quarter: 2017Q2

REPORT INFORMATION
  Report Type: Spontaneous
  Country: US (occurrence: US)
  Receive Date: 20170629
  Receipt Date: 20170629
  Transmission Date: 20170830
  Serious: No
  Sender: FDA-Public Use
  Company Number: None

PATIENT
  Age: 29 Year
  Sex: Female
  Weight: 69.75 kg

DRUGS (1)
  1. LOESTRIN NOS [Suspect]
     Active Substance: ETHINYL ESTRADIOL\NORETHINDRONE ACETATE
     Indication: MENSTRUAL CYCLE MANAGEMENT
     Dosage: ?          OTHER STRENGTH:MG;QUANTITY:21 TABLET(S);?
     Route: 048
     Dates: start: 20170430, end: 20170622

REACTIONS (4)
  - Vaginal haemorrhage [None]
  - Anger [None]
  - Depression [None]
  - Menorrhagia [None]

NARRATIVE: CASE EVENT DATE: 20170501
